FAERS Safety Report 12373970 (Version 1)
Quarter: 2016Q2

REPORT INFORMATION
  Report Type: Spontaneous
  Country: FR (occurrence: FR)
  Receive Date: 20160517
  Receipt Date: 20160517
  Transmission Date: 20160815
  Serious: Yes (Other)
  Sender: FDA-Public Use
  Company Number: FR-ROCHE-1757228

PATIENT
  Age: 60 Year
  Sex: Male

DRUGS (3)
  1. VFEND [Concomitant]
     Active Substance: VORICONAZOLE
     Route: 048
     Dates: start: 201603
  2. ROVALCYTE [Suspect]
     Active Substance: VALGANCICLOVIR HYDROCHLORIDE
     Indication: PRODUCT USED FOR UNKNOWN INDICATION
     Dosage: DAYS
     Route: 048
     Dates: start: 20160404, end: 20160418
  3. NEORAL [Concomitant]
     Active Substance: CYCLOSPORINE
     Route: 048
     Dates: start: 201603

REACTIONS (6)
  - Neutropenia [Recovering/Resolving]
  - Insomnia [Recovering/Resolving]
  - Nausea [Recovering/Resolving]
  - Confusional state [Recovering/Resolving]
  - Blood creatinine increased [Recovering/Resolving]
  - Vomiting [Recovering/Resolving]
